FAERS Safety Report 19279538 (Version 1)
Quarter: 2021Q2

REPORT INFORMATION
  Report Type: Spontaneous
  Country: EG (occurrence: EG)
  Receive Date: 20210520
  Receipt Date: 20210520
  Transmission Date: 20210717
  Serious: Yes (Other)
  Sender: FDA-Public Use
  Company Number: EG-ELI_LILLY_AND_COMPANY-EG202105007502

PATIENT
  Age: 67 Year
  Sex: Female

DRUGS (1)
  1. GEMZAR [Suspect]
     Active Substance: GEMCITABINE HYDROCHLORIDE
     Indication: PANCREATIC CARCINOMA
     Dosage: 1 G, UNKNOWN
     Route: 042

REACTIONS (4)
  - Back pain [Unknown]
  - Vomiting [Unknown]
  - Hypoacusis [Unknown]
  - Tremor [Unknown]
